FAERS Safety Report 24168807 (Version 1)
Quarter: 2024Q3

REPORT INFORMATION
  Report Type: Spontaneous
  Country: US (occurrence: None)
  Receive Date: 20240802
  Receipt Date: 20240802
  Transmission Date: 20241017
  Serious: No
  Sender: Public
  Company Number: None

PATIENT

DRUGS (2)
  1. CARNITOR SF [Suspect]
     Active Substance: LEVOCARNITINE
  2. LEVOCARNITINE [Suspect]
     Active Substance: LEVOCARNITINE
     Dosage: ORAL
     Route: 048

REACTIONS (4)
  - Product dispensing error [None]
  - Wrong product administered [None]
  - Seizure [None]
  - Wrong product stored [None]
